FAERS Safety Report 16756010 (Version 1)
Quarter: 2019Q3

REPORT INFORMATION
  Report Type: Report from Study
  Country: GB (occurrence: GB)
  Receive Date: 20190829
  Receipt Date: 20190829
  Transmission Date: 20191005
  Serious: Yes (Other)
  Sender: FDA-Public Use
  Company Number: GB-SAMSUNG BIOEPIS-SB-2019-14436

PATIENT
  Age: 35 Year
  Sex: Female

DRUGS (3)
  1. IMRALDI [Suspect]
     Active Substance: ADALIMUMAB
     Route: 058
  2. IMRALDI [Suspect]
     Active Substance: ADALIMUMAB
     Indication: CROHN^S DISEASE
     Route: 058
     Dates: start: 20190529
  3. IMRALDI [Suspect]
     Active Substance: ADALIMUMAB
     Dosage: WEEK TWO LOADING DOSE
     Route: 058

REACTIONS (7)
  - Off label use [Unknown]
  - Kidney infection [Unknown]
  - Nausea [Unknown]
  - Injection site pain [Unknown]
  - Injection site erythema [Unknown]
  - Injection site bruising [Unknown]
  - Maternal exposure during pregnancy [Unknown]

NARRATIVE: CASE EVENT DATE: 20190529
